FAERS Safety Report 7288633-9 (Version None)
Quarter: 2011Q1

REPORT INFORMATION
  Report Type: 
  Country: None (occurrence: None)
  Receive Date: 20110211
  Receipt Date: 20110207
  Transmission Date: 20110831
  Serious: Yes (Death)
  Sender: FDA-Public Use
  Company Number: US-BRISTOL-MYERS SQUIBB COMPANY-15478993

PATIENT
  Age: 56 Year
  Sex: Male

DRUGS (2)
  1. ERBITUX [Suspect]
  2. CISPLATIN [Suspect]

REACTIONS (1)
  - DEATH [None]
